FAERS Safety Report 12520043 (Version 2)
Quarter: 2016Q3

REPORT INFORMATION
  Report Type: Spontaneous
  Country: US (occurrence: US)
  Receive Date: 20160701
  Receipt Date: 20160705
  Transmission Date: 20161109
  Serious: No
  Sender: FDA-Public Use
  Company Number: US-HORIZON-RAV-0119-2016

PATIENT
  Age: 30 Year
  Sex: Male

DRUGS (4)
  1. CYCLINEX [Concomitant]
     Dosage: 3 TABLESPOONS
  2. RAVICTI [Suspect]
     Active Substance: GLYCEROL PHENYLBUTYRATE
     Indication: ORNITHINE TRANSCARBAMOYLASE DEFICIENCY
     Dosage: 5.8 ML TID
     Dates: start: 20130522
  3. MULTIVITAMIN WITH IRON [Concomitant]
     Active Substance: IRON\VITAMINS
     Dosage: DAILY
  4. PROPHREE [Concomitant]
     Dosage: HALF CUP

REACTIONS (2)
  - Nausea [Unknown]
  - Hypophagia [Unknown]
